FAERS Safety Report 4338703-X (Version None)
Quarter: 2004Q2

REPORT INFORMATION
  Report Type: 
  Country: None (occurrence: None)
  Receive Date: 20040409
  Receipt Date: 20040405
  Transmission Date: 20050107
  Serious: Yes (Other)
  Sender: FDA-Public Use
  Company Number: 200403590

PATIENT
  Age: 22 Year
  Sex: Female

DRUGS (2)
  1. TYLENOL [Suspect]
     Dates: start: 20040401
  2. METHAMPHETAMINES [Concomitant]

REACTIONS (2)
  - CHILD NEGLECT [None]
  - LOSS OF CONSCIOUSNESS [None]
